FAERS Safety Report 8920096 (Version 3)
Quarter: 2013Q2

REPORT INFORMATION
  Report Type: Report from Study
  Country: US (occurrence: US)
  Receive Date: 20121121
  Receipt Date: 20130410
  Transmission Date: 20140414
  Serious: Yes (Hospitalization)
  Sender: FDA-Public Use
  Company Number: US-BRISTOL-MYERS SQUIBB COMPANY-16613085

PATIENT
  Age: 40 Year
  Sex: Female
  Weight: 99.4 kg

DRUGS (1)
  1. IPILIMUMAB [Suspect]
     Indication: MALIGNANT MELANOMA
     Dosage: LAST DOSE ON 09MAY2012?TOTAL 3018MG?MAINT. DOSE=10MG/KG Q12WEEKS
     Route: 042
     Dates: start: 20120328

REACTIONS (4)
  - Hypophysitis [Not Recovered/Not Resolved]
  - Headache [Not Recovered/Not Resolved]
  - Photophobia [Not Recovered/Not Resolved]
  - Stomatitis [Not Recovered/Not Resolved]
